FAERS Safety Report 6616012-3 (Version None)
Quarter: 2010Q1

REPORT INFORMATION
  Report Type: 
  Country: None (occurrence: None)
  Receive Date: 20100305
  Receipt Date: 20100226
  Transmission Date: 20100710
  Serious: Yes (Death)
  Sender: FDA-Public Use
  Company Number: B0630064A

PATIENT
  Sex: Male

DRUGS (8)
  1. AVOLVE [Suspect]
     Indication: BENIGN PROSTATIC HYPERPLASIA
     Dosage: .5MG PER DAY
     Route: 048
     Dates: start: 20091209, end: 20100104
  2. LEUPLIN [Suspect]
     Indication: DRUG USE FOR UNKNOWN INDICATION
     Route: 058
  3. SILODOSIN [Suspect]
     Indication: DYSURIA
     Dosage: 8MG PER DAY
     Route: 048
     Dates: start: 20091205, end: 20100104
  4. DECADRON [Suspect]
     Indication: DRUG USE FOR UNKNOWN INDICATION
     Dosage: 2MG PER DAY
     Route: 048
     Dates: start: 20091209
  5. ETHINYL ESTRADIOL [Concomitant]
     Indication: PROSTATE CANCER
     Dosage: 1MG PER DAY
     Route: 048
     Dates: start: 20090624, end: 20091208
  6. PANALDINE [Concomitant]
     Indication: THROMBOSIS PROPHYLAXIS
     Dosage: 200MG PER DAY
     Route: 048
     Dates: start: 20090624, end: 20091208
  7. MAGNESIUM OXIDE [Concomitant]
     Dosage: 3G PER DAY
     Route: 048
     Dates: start: 20100104, end: 20100111
  8. PURSENNID [Concomitant]
     Dosage: 24MG PER DAY
     Route: 048
     Dates: start: 20100104, end: 20100111

REACTIONS (23)
  - ABDOMINAL DISCOMFORT [None]
  - ALANINE AMINOTRANSFERASE INCREASED [None]
  - ASPARTATE AMINOTRANSFERASE INCREASED [None]
  - BLOOD ALDOSTERONE INCREASED [None]
  - BLOOD BILIRUBIN INCREASED [None]
  - BLOOD CREATININE INCREASED [None]
  - BLOOD LACTATE DEHYDROGENASE INCREASED [None]
  - BLOOD POTASSIUM INCREASED [None]
  - BLOOD UREA INCREASED [None]
  - CONSTIPATION [None]
  - DYSURIA [None]
  - FAECES DISCOLOURED [None]
  - GAMMA-GLUTAMYLTRANSFERASE INCREASED [None]
  - HAEMATURIA [None]
  - HEPATIC FUNCTION ABNORMAL [None]
  - HYPOPHAGIA [None]
  - MALAISE [None]
  - MULTI-ORGAN FAILURE [None]
  - PLATELET COUNT DECREASED [None]
  - PROTEIN TOTAL DECREASED [None]
  - RED BLOOD CELL COUNT DECREASED [None]
  - RENAL IMPAIRMENT [None]
  - WHITE BLOOD CELL COUNT INCREASED [None]
